FAERS Safety Report 5484088-5 (Version None)
Quarter: 2007Q4

REPORT INFORMATION
  Report Type: 
  Country: None (occurrence: None)
  Receive Date: 20071012
  Receipt Date: 20071001
  Transmission Date: 20080405
  Serious: Yes (Hospitalization)
  Sender: FDA-Public Use
  Company Number: US-SHR-US-2006-012656

PATIENT
  Age: 32 Year
  Sex: Female
  Weight: 60.771 kg

DRUGS (7)
  1. BETASERON [Suspect]
     Indication: RELAPSING-REMITTING MULTIPLE SCLEROSIS
     Dosage: 8 MIU, EVERY 2D
     Route: 058
     Dates: start: 20050504, end: 20060301
  2. BETASERON [Suspect]
     Dosage: 8 MIU, EVERY 2D
     Route: 058
     Dates: start: 20060322
  3. BETASERON [Suspect]
     Dosage: 8 MIU, 3X/WEEK
     Route: 058
     Dates: start: 20060701
  4. TYLENOL (CAPLET) [Concomitant]
     Dosage: 1 G, GENERALLY 2 H PRIOR TO INJ.
  5. CALCIUM [Concomitant]
  6. ZINC [Concomitant]
  7. VITAMIN PREPARATION COMPOUND [Concomitant]

REACTIONS (12)
  - COGNITIVE DISORDER [None]
  - COMA [None]
  - CONFUSIONAL STATE [None]
  - DRUG EXPOSURE DURING PREGNANCY [None]
  - DYSARTHRIA [None]
  - FATIGUE [None]
  - GAIT DISTURBANCE [None]
  - GRAND MAL CONVULSION [None]
  - INTRA-UTERINE DEATH [None]
  - PRE-ECLAMPSIA [None]
  - PYREXIA [None]
  - WEIGHT DECREASED [None]
